FAERS Safety Report 8169898-8 (Version None)
Quarter: 2012Q1

REPORT INFORMATION
  Report Type: 
  Country: None (occurrence: None)
  Receive Date: 20120228
  Receipt Date: 20120224
  Transmission Date: 20120608
  Serious: Yes (Other)
  Sender: FDA-Public Use
  Company Number: US-PFIZER INC-2012049990

PATIENT
  Sex: Female
  Weight: 45.35 kg

DRUGS (4)
  1. DEPO-PROVERA [Suspect]
     Indication: CONTRACEPTION
     Dosage: UNK
     Dates: start: 20111101
  2. CONCERTA [Concomitant]
     Dosage: 54 MG, FIVE DAYS A WEEK
  3. IBUPROFEN (ADVIL) [Concomitant]
     Dosage: UNK, AS NEEDED
  4. CODEINE [Suspect]
     Dosage: UNK

REACTIONS (13)
  - BRONCHIAL OEDEMA [None]
  - OEDEMA PERIPHERAL [None]
  - EYELID OEDEMA [None]
  - HYPERHIDROSIS [None]
  - NAUSEA [None]
  - VISUAL IMPAIRMENT [None]
  - DYSPNOEA [None]
  - RASH [None]
  - HEADACHE [None]
  - BODY TEMPERATURE INCREASED [None]
  - CHILLS [None]
  - PRURITUS [None]
  - SKIN DISORDER [None]
